FAERS Safety Report 10287607 (Version 1)
Quarter: 2014Q3

REPORT INFORMATION
  Report Type: Spontaneous
  Country: IN (occurrence: None)
  Receive Date: 20140707
  Receipt Date: 20140707
  Transmission Date: 20150326
  Serious: Yes (Hospitalization)
  Sender: FDA-Public Use
  Company Number: 2014-IN-007864

PATIENT
  Age: 23 Year
  Sex: Female

DRUGS (3)
  1. CLONAZEPAM. [Suspect]
     Active Substance: CLONAZEPAM
     Route: 048
  2. FOLIC ACID. [Suspect]
     Active Substance: FOLIC ACID
     Route: 048
  3. CLOZAPINE. [Suspect]
     Active Substance: CLOZAPINE
     Indication: SCHIZOPHRENIA
     Route: 048

REACTIONS (15)
  - Toxicity to various agents [None]
  - Major depression [None]
  - Tachycardia [None]
  - Delirium [None]
  - Intentional overdose [None]
  - Electrocardiogram QT prolonged [None]
  - Electrocardiogram ST segment depression [None]
  - Blood pressure systolic decreased [None]
  - Coma [None]
  - Disorientation [None]
  - Somnolence [None]
  - Electrocardiogram T wave amplitude decreased [None]
  - Respiratory depression [None]
  - Pleural effusion [None]
  - Affective disorder [None]
